FAERS Safety Report 11128151 (Version 1)
Quarter: 2015Q2

REPORT INFORMATION
  Report Type: Spontaneous
  Country: US (occurrence: US)
  Receive Date: 20150521
  Receipt Date: 20150521
  Transmission Date: 20150821
  Serious: Yes (Hospitalization)
  Sender: FDA-Public Use
  Company Number: US-ROCHE-1580050

PATIENT
  Sex: Male

DRUGS (1)
  1. ZELBORAF [Suspect]
     Active Substance: VEMURAFENIB
     Indication: METASTATIC MALIGNANT MELANOMA
     Dosage: 4 TABS IN THE AM, AND 4 TABS IN THE PM
     Route: 065
     Dates: start: 201407

REACTIONS (5)
  - Dizziness [Not Recovered/Not Resolved]
  - Somnolence [Not Recovered/Not Resolved]
  - Drug dose omission [Unknown]
  - Disorientation [Not Recovered/Not Resolved]
  - Arthralgia [Recovered/Resolved]
